FAERS Safety Report 7714032 (Version 2)
Quarter: 2012Q4

REPORT INFORMATION
  Report Type: Report from Study
  Country: US (occurrence: US)
  Receive Date: 20101216
  Receipt Date: 20120919
  Transmission Date: 20130627
  Serious: Yes (Life-Threatening, Hospitalization)
  Sender: FDA-Public Use
  Company Number: US-BRISTOL-MYERS SQUIBB COMPANY-15434921

PATIENT
  Age: 30 Year
  Sex: Male

DRUGS (6)
  1. ATAZANAVIR [Suspect]
     Indication: HIV INFECTION
     Route: 048
  2. TENOFOVIR DF + EMTRICITABINE [Suspect]
     Indication: HIV INFECTION
  3. RITONAVIR [Suspect]
     Indication: HIV INFECTION
     Route: 048
  4. TRAMADOL [Concomitant]
     Indication: PAIN
     Route: 048
     Dates: end: 20101204
  5. TIZANIDINE [Concomitant]
     Indication: MUSCLE RELAXANT THERAPY
     Route: 048
     Dates: end: 20101204
  6. TYLENOL EXTRA STRENGTH [Concomitant]
     Indication: NASOPHARYNGITIS
     Route: 048
     Dates: end: 20101203

REACTIONS (5)
  - Chest pain [Recovered/Resolved]
  - Nasopharyngitis [None]
  - Paraesthesia [None]
  - Pain in extremity [None]
  - Troponin I increased [None]
